FAERS Safety Report 9483214 (Version 1)
Quarter: 2013Q3

REPORT INFORMATION
  Report Type: Spontaneous
  Country: US (occurrence: US)
  Receive Date: 20130828
  Receipt Date: 20130828
  Transmission Date: 20140515
  Serious: No
  Sender: FDA-Public Use
  Company Number: US-MUTUAL PHARMACEUTICAL COMPANY, INC.-DXCY20130007

PATIENT
  Sex: Female

DRUGS (1)
  1. DOXYCYCLINE HYCLATE CAPSULES 100 MG [Suspect]
     Indication: PRODUCT USED FOR UNKNOWN INDICATION
     Route: 065

REACTIONS (5)
  - Confusional state [Unknown]
  - Muscle spasms [Unknown]
  - Feeling abnormal [Unknown]
  - Malaise [Unknown]
  - Sleep disorder [Unknown]
